FAERS Safety Report 25964627 (Version 1)
Quarter: 2025Q4

REPORT INFORMATION
  Report Type: Report from Study
  Country: US (occurrence: US)
  Receive Date: 20251027
  Receipt Date: 20251027
  Transmission Date: 20260119
  Serious: No
  Sender: GRIFOLS
  Company Number: US-IGSA-BIG0039046

PATIENT
  Age: 37 Year
  Sex: Male
  Weight: 133 kg

DRUGS (3)
  1. GAMUNEX-C [Suspect]
     Active Substance: HUMAN IMMUNOGLOBULIN G
     Indication: Chronic inflammatory demyelinating polyradiculoneuropathy
     Dosage: 100 MILLILITER, QD 5 DAYS CONSECUTIVELY
     Route: 042
     Dates: start: 20250512, end: 20250516
  2. GAMUNEX-C [Suspect]
     Active Substance: HUMAN IMMUNOGLOBULIN G
     Indication: Neuropathy peripheral
  3. GAMUNEX-C [Suspect]
     Active Substance: HUMAN IMMUNOGLOBULIN G
     Indication: Polyneuropathy

REACTIONS (4)
  - Urticaria [Unknown]
  - Skin exfoliation [Unknown]
  - Rash vesicular [Unknown]
  - Hypersensitivity [Unknown]

NARRATIVE: CASE EVENT DATE: 20250523
